FAERS Safety Report 22613880 (Version 1)
Quarter: 2023Q2

REPORT INFORMATION
  Report Type: Spontaneous
  Country: US (occurrence: US)
  Receive Date: 20230619
  Receipt Date: 20230619
  Transmission Date: 20230722
  Serious: Yes (Other)
  Sender: FDA-Public Use
  Company Number: US-BRISTOL-MYERS SQUIBB COMPANY-2023-085070

PATIENT
  Age: 77 Year
  Sex: Female
  Weight: 94.35 kg

DRUGS (2)
  1. ONUREG [Suspect]
     Active Substance: AZACITIDINE
     Indication: Acute myeloid leukaemia
     Dosage: 2 WEEKS ON, 2 WEEKS OFF
     Route: 048
  2. VENCLEXTA [Suspect]
     Active Substance: VENETOCLAX
     Indication: Acute myeloid leukaemia
     Route: 048
     Dates: start: 20230301

REACTIONS (4)
  - Sinusitis [Recovering/Resolving]
  - Pneumonia [Unknown]
  - Nausea [Unknown]
  - Chest pain [Unknown]

NARRATIVE: CASE EVENT DATE: 20220101
